FAERS Safety Report 5337019-2 (Version None)
Quarter: 2007Q2

REPORT INFORMATION
  Report Type: 
  Country: None (occurrence: None)
  Receive Date: 20070523
  Receipt Date: 20070510
  Transmission Date: 20071010
  Serious: Yes (Hospitalization)
  Sender: FDA-Public Use
  Company Number: GXKR2007GB04214

PATIENT
  Age: 75 Year
  Sex: Female

DRUGS (6)
  1. BISOPROLOL FUMARATE [Suspect]
     Dosage: 2.5 MG, QD, ORAL
     Route: 048
     Dates: start: 20070423, end: 20070426
  2. CLOPIDOGREL [Concomitant]
  3. FERROUS SULFATE TAB [Concomitant]
  4. LANSOPRAZOLE [Concomitant]
  5. OXYBUTYNIN CHLORIDE [Concomitant]
  6. RAMIPRIL [Concomitant]

REACTIONS (1)
  - SYNCOPE [None]
